FAERS Safety Report 9705864 (Version 1)
Quarter: 2013Q4

REPORT INFORMATION
  Report Type: Spontaneous
  Country: AT (occurrence: AT)
  Receive Date: 20131122
  Receipt Date: 20131122
  Transmission Date: 20140711
  Serious: Yes (Death, Other)
  Sender: FDA-Public Use
  Company Number: AU-ASTRAZENECA-2013SE85918

PATIENT
  Age: 80 Year
  Sex: Female

DRUGS (2)
  1. MEROPENEM [Suspect]
     Route: 042
  2. VANCOMYCIN [Suspect]
     Route: 042

REACTIONS (2)
  - Fungal sepsis [Fatal]
  - Clostridium difficile colitis [Unknown]
